FAERS Safety Report 18494988 (Version 4)
Quarter: 2020Q4

REPORT INFORMATION
  Report Type: Spontaneous
  Country: JP (occurrence: JP)
  Receive Date: 20201112
  Receipt Date: 20201224
  Transmission Date: 20210114
  Serious: Yes (Hospitalization, Other)
  Sender: FDA-Public Use
  Company Number: JP-LUPIN PHARMACEUTICALS INC.-2020-08555

PATIENT
  Age: 6 Year
  Sex: Female
  Weight: 15 kg

DRUGS (12)
  1. GABAPENTIN. [Suspect]
     Active Substance: GABAPENTIN
     Dosage: 40 MILLIGRAM/KILOGRAM, QD, GRINDES TABLETS, INJECTED THROUGH GASTRONOMY TUBE
     Route: 048
  2. LACOSAMIDE. [Concomitant]
     Active Substance: LACOSAMIDE
     Indication: EPILEPSY
     Dosage: 8 MILLIGRAM/KILOGRAM, QD
     Route: 048
  3. PHENOBARBITAL. [Concomitant]
     Active Substance: PHENOBARBITAL
     Indication: EPILEPSY
     Dosage: 10 MILLIGRAM/KILOGRAM, QD
     Route: 048
  4. CLONAZEPAM. [Concomitant]
     Active Substance: CLONAZEPAM
     Indication: EPILEPSY
     Dosage: 0.1 MILLIGRAM/KILOGRAM, QD
     Route: 048
  5. GABAPENTIN. [Suspect]
     Active Substance: GABAPENTIN
     Indication: PAROXYSMAL SYMPATHETIC HYPERACTIVITY
     Dosage: 30 MILLIGRAM/KILOGRAM, QD, GRINDES TABLETS, INJECTED THROUGH GASTRONOMY TUBE
     Route: 048
  6. PHENYTOIN SODIUM. [Suspect]
     Active Substance: PHENYTOIN SODIUM
     Indication: EPILEPSY
     Dosage: UNK, FINE PARTICLES. INJECTED THROUGH GASTRONOMY TUBE
     Route: 048
  7. LAMOTRIGINE. [Concomitant]
     Active Substance: LAMOTRIGINE
     Indication: EPILEPSY
     Dosage: 3.6 MILLIGRAM/KILOGRAM, QD
     Route: 048
  8. VALPROIC ACID. [Suspect]
     Active Substance: VALPROIC ACID
     Dosage: 8 MILLIGRAM/KILOGRAM, QD, FINE PARTICLES. INJECTED THROUGH GASTRONOMY TUBE
     Route: 048
  9. VALPROIC ACID. [Suspect]
     Active Substance: VALPROIC ACID
     Indication: EPILEPSY
     Dosage: 16 MILLIGRAM/KILOGRAM, QD, FINE PARTICLES. INJECTED THROUGH GASTRONOMY TUBE
     Route: 048
  10. POTASSIUM BROMIDE [Concomitant]
     Active Substance: POTASSIUM BROMIDE
     Indication: EPILEPSY
     Dosage: 35 MILLIGRAM/KILOGRAM, QD
     Route: 048
  11. PERAMPANEL [Concomitant]
     Active Substance: PERAMPANEL
     Indication: EPILEPSY
     Dosage: 0.15 MILLIGRAM/KILOGRAM, QD
     Route: 048
  12. TIZANIDINE. [Concomitant]
     Active Substance: TIZANIDINE
     Indication: PAROXYSMAL SYMPATHETIC HYPERACTIVITY
     Dosage: UNK
     Route: 065

REACTIONS (2)
  - Hepatic enzyme increased [Recovered/Resolved]
  - Hyperammonaemia [Recovered/Resolved]
